FAERS Safety Report 7913623-X (Version None)
Quarter: 2011Q4

REPORT INFORMATION
  Report Type: 
  Country: None (occurrence: None)
  Receive Date: 20111115
  Receipt Date: 20111111
  Transmission Date: 20120403
  Serious: No
  Sender: FDA-Public Use
  Company Number: US-PFIZER INC-2011277230

PATIENT
  Age: 3 Year
  Sex: Male

DRUGS (1)
  1. CHILDREN'S ADVIL [Suspect]
     Indication: POSTOPERATIVE CARE
     Dosage: UNK, 1X/DAY
     Route: 048
     Dates: start: 20111109, end: 20111111

REACTIONS (11)
  - NERVOUS SYSTEM DISORDER [None]
  - INSOMNIA [None]
  - RESTLESSNESS [None]
  - HEART RATE IRREGULAR [None]
  - PAIN IN JAW [None]
  - HALLUCINATION [None]
  - IRRITABILITY [None]
  - NERVOUSNESS [None]
  - AGITATION [None]
  - ARRHYTHMIA [None]
  - DYSKINESIA [None]
